FAERS Safety Report 7735101-3 (Version None)
Quarter: 2011Q3

REPORT INFORMATION
  Report Type: 
  Country: None (occurrence: None)
  Receive Date: 20110907
  Receipt Date: 20110825
  Transmission Date: 20111222
  Serious: Yes (Other)
  Sender: FDA-Public Use
  Company Number: DE-CEPHALON-2011004514

PATIENT
  Age: 55 Year
  Sex: Male
  Weight: 83 kg

DRUGS (2)
  1. BENDAMUSTINE HCL [Suspect]
     Route: 041
     Dates: start: 20110404
  2. RITUXIMAB [Suspect]
     Route: 042
     Dates: start: 20110404

REACTIONS (1)
  - LIVER FUNCTION TEST ABNORMAL [None]
